FAERS Safety Report 6453167-8 (Version None)
Quarter: 2009Q4

REPORT INFORMATION
  Report Type: 
  Country: None (occurrence: None)
  Receive Date: 20091124
  Receipt Date: 20091116
  Transmission Date: 20100525
  Serious: Yes (Hospitalization, Other)
  Sender: FDA-Public Use
  Company Number: JP-BRISTOL-MYERS SQUIBB COMPANY-14858302

PATIENT
  Age: 19 Year
  Sex: Male

DRUGS (3)
  1. AMPICILLIN [Suspect]
  2. HEPARIN [Suspect]
     Route: 042
  3. LIDOCAINE [Suspect]
     Indication: LOCAL ANAESTHESIA

REACTIONS (2)
  - ANAPHYLACTIC SHOCK [None]
  - ANOSMIA [None]
